FAERS Safety Report 13369315 (Version 1)
Quarter: 2017Q1

REPORT INFORMATION
  Report Type: Spontaneous
  Country: US (occurrence: US)
  Receive Date: 20170324
  Receipt Date: 20170324
  Transmission Date: 20170429
  Serious: Yes (Disabling, Other)
  Sender: FDA-Public Use
  Company Number: None

PATIENT
  Age: 54 Year
  Sex: Female
  Weight: 61.2 kg

DRUGS (3)
  1. ACETAMINOPHEN-CODEINE #3 [Suspect]
     Active Substance: ACETAMINOPHEN\CODEINE PHOSPHATE
     Indication: FIBROMYALGIA
     Dosage: ?          QUANTITY:120 TABLET(S);?
     Route: 048
     Dates: start: 20170306, end: 20170316
  2. BENADRYL [Concomitant]
     Active Substance: DIPHENHYDRAMINE HYDROCHLORIDE
  3. TEMAZEPAM. [Concomitant]
     Active Substance: TEMAZEPAM

REACTIONS (6)
  - Sinus disorder [None]
  - Dyspnoea [None]
  - Nasal dryness [None]
  - Pain [None]
  - Madarosis [None]
  - Sinusitis [None]

NARRATIVE: CASE EVENT DATE: 20170307
